FAERS Safety Report 9366646 (Version 3)
Quarter: 2013Q3

REPORT INFORMATION
  Report Type: Spontaneous
  Country: JP (occurrence: JP)
  Receive Date: 20130625
  Receipt Date: 20130826
  Transmission Date: 20140515
  Serious: Yes (Other)
  Sender: FDA-Public Use
  Company Number: JP-B.I. PHARMACEUTICALS,INC./RIDGEFIELD-2013-BI-17763NB

PATIENT
  Age: 76 Year
  Sex: Male
  Weight: 75 kg

DRUGS (8)
  1. TRAZENTA [Suspect]
     Indication: TYPE 2 DIABETES MELLITUS
     Dosage: 5 MG
     Route: 048
     Dates: start: 20130522, end: 20130606
  2. MEDET [Concomitant]
     Indication: TYPE 2 DIABETES MELLITUS
     Dosage: 750 MG
     Route: 048
     Dates: start: 20100906
  3. BICALUTAMIDE [Concomitant]
     Indication: PROSTATE CANCER
     Dosage: 80 MG
     Route: 048
     Dates: start: 20130513
  4. NEUROTROPIN [Concomitant]
     Indication: SPINAL LIGAMENT OSSIFICATION
     Dosage: 16 U
     Route: 048
     Dates: start: 20081208
  5. MUCOSTA [Concomitant]
     Indication: PROPHYLAXIS
     Dosage: 200 MG
     Route: 048
     Dates: start: 20081208
  6. GASTER D [Concomitant]
     Indication: PROPHYLAXIS
     Dosage: 20 MG
     Route: 048
     Dates: start: 20090305
  7. LOCHOL [Concomitant]
     Indication: DYSLIPIDAEMIA
     Dosage: 20 MG
     Route: 048
     Dates: start: 20090831
  8. PREDONINE [Concomitant]
     Indication: PROSTATE CANCER
     Dosage: 10 MG
     Route: 048
     Dates: start: 20090209

REACTIONS (1)
  - Drug eruption [Recovered/Resolved]
